FAERS Safety Report 7288684-4 (Version None)
Quarter: 2011Q1

REPORT INFORMATION
  Report Type: 
  Country: None (occurrence: None)
  Receive Date: 20110211
  Receipt Date: 20110131
  Transmission Date: 20110831
  Serious: Yes (Other)
  Sender: FDA-Public Use
  Company Number: ZA-ASTRAZENECA-2011SE05620

PATIENT
  Age: 65 Year
  Sex: Female

DRUGS (11)
  1. CHLOROQUINE [Concomitant]
     Indication: MUCOSAL INFLAMMATION
  2. PREDNISONE [Concomitant]
  3. STEROIDS [Concomitant]
     Indication: MUCOSAL INFLAMMATION
  4. CRESTOR [Suspect]
     Indication: HYPERCHOLESTEROLAEMIA
     Route: 048
     Dates: start: 20091027, end: 20110116
  5. DICLOFENAC [Concomitant]
  6. NSAIDS [Concomitant]
     Indication: MUCOSAL INFLAMMATION
  7. LIPITOR [Concomitant]
  8. METHOTREXATE [Concomitant]
  9. PRAVASTATIN [Concomitant]
  10. LANSOPRAZOLE [Concomitant]
  11. ESTROFEM [Concomitant]

REACTIONS (2)
  - MUSCLE ATROPHY [None]
  - MUSCULAR WEAKNESS [None]
